FAERS Safety Report 14301444 (Version 2)
Quarter: 2018Q2

REPORT INFORMATION
  Report Type: Spontaneous
  Country: PT (occurrence: PT)
  Receive Date: 20171219
  Receipt Date: 20180615
  Transmission Date: 20180711
  Serious: Yes (Hospitalization, Other)
  Sender: FDA-Public Use
  Company Number: PT-AUROBINDO-AUR-APL-2017-46034

PATIENT
  Age: 93 Year
  Sex: Female

DRUGS (3)
  1. LABETALOL [Concomitant]
     Active Substance: LABETALOL\LABETALOL HYDROCHLORIDE
     Indication: PRODUCT USED FOR UNKNOWN INDICATION
     Dosage: ()
     Route: 065
  2. AMOXICILLIN+CLAVULANIC ACID [Suspect]
     Active Substance: AMOXICILLIN\CLAVULANIC ACID
     Indication: CELLULITIS
     Dosage: UNK ()
     Route: 042
  3. FLUCLOXACILLIN [Suspect]
     Active Substance: FLUCLOXACILLIN
     Indication: CELLULITIS
     Dosage: UNK ()
     Route: 065

REACTIONS (8)
  - Subarachnoid haemorrhage [Unknown]
  - Cerebral artery thrombosis [Unknown]
  - Aphasia [Unknown]
  - Hemianopia [Unknown]
  - Cerebral haemorrhage [Unknown]
  - Hemiplegia [Unknown]
  - Facial paresis [Unknown]
  - Drug ineffective [Unknown]
